FAERS Safety Report 24452269 (Version 1)
Quarter: 2024Q4

REPORT INFORMATION
  Report Type: Spontaneous
  Country: US (occurrence: US)
  Receive Date: 20241017
  Receipt Date: 20241017
  Transmission Date: 20250114
  Serious: Yes (Other)
  Sender: SUNOVION
  Company Number: US-UROVANT SCIENCES GMBH-202402-URV-000172

PATIENT
  Sex: Female

DRUGS (3)
  1. GEMTESA [Suspect]
     Active Substance: VIBEGRON
     Indication: Hypertonic bladder
     Dosage: 75 MG, QD
     Route: 048
     Dates: start: 202305
  2. REBIF [Concomitant]
     Active Substance: INTERFERON BETA-1A
     Indication: Product used for unknown indication
     Dosage: UNK
  3. INTERFERON [Concomitant]
     Active Substance: INTERFERON
     Indication: Product used for unknown indication
     Dosage: UNK

REACTIONS (4)
  - Urinary retention [Unknown]
  - Bladder pain [Unknown]
  - Bladder discomfort [Unknown]
  - Product dispensing error [Unknown]
